FAERS Safety Report 5346305-1 (Version None)
Quarter: 2007Q2

REPORT INFORMATION
  Report Type: 
  Country: None (occurrence: None)
  Receive Date: 20070430
  Receipt Date: 20070131
  Transmission Date: 20071010
  Serious: No
  Sender: FDA-Public Use
  Company Number: 260554

PATIENT
  Age: 85 Year
  Sex: Female
  Weight: 80.7 kg

DRUGS (4)
  1. LEVEMIR [Suspect]
     Indication: INSULIN-REQUIRING TYPE II DIABETES MELLITUS
     Dosage: 14 IU,QD, SUBCUTANEOUS
     Route: 058
     Dates: start: 20061101
  2. NOVOLOG [Concomitant]
  3. PERCOCET [Concomitant]
  4. TOPROL-XL [Concomitant]

REACTIONS (3)
  - BLOOD GLUCOSE INCREASED [None]
  - DYSURIA [None]
  - RASH [None]
